FAERS Safety Report 20612635 (Version 3)
Quarter: 2022Q4

REPORT INFORMATION
  Report Type: Spontaneous
  Country: US (occurrence: US)
  Receive Date: 20220318
  Receipt Date: 20221026
  Transmission Date: 20230113
  Serious: No
  Sender: FDA-Public Use
  Company Number: US-PFIZER INC-2021670411

PATIENT
  Age: 36 Year
  Sex: Male

DRUGS (10)
  1. EUCRISA [Suspect]
     Active Substance: CRISABOROLE
     Indication: Seborrhoeic dermatitis
     Dosage: UNK, 2X/DAY, (APPLY TO AFFECTED AREAS ON FACE, SCALP AND EARS-TWICE A DAY AS NEEDED)
     Route: 061
  2. EUCRISA [Suspect]
     Active Substance: CRISABOROLE
     Dosage: UNK, 1X/DAY (INCREASE TO BID TWICE A DAY PRN AS NEEDED )
     Route: 061
  3. EUCRISA [Suspect]
     Active Substance: CRISABOROLE
     Dosage: UNK (2-3 TIMES PER WEEK)
     Route: 061
  4. EUCRISA [Suspect]
     Active Substance: CRISABOROLE
     Dosage: UNK, AS NEEDED (QD-BD PRN)
  5. EUCRISA [Suspect]
     Active Substance: CRISABOROLE
     Dosage: UNK, AS NEEDED (AT FACE SCALP AND EARS QD-BID PRN)
  6. KETOCONAZOLE [Concomitant]
     Active Substance: KETOCONAZOLE
     Indication: Seborrhoeic dermatitis
     Dosage: 2X/WEEK (AFFECTED AREA OF DAMP SCALP. LET SIT FOR 3-5 MINUTES THEN RINSE. USE 2-3 TIMES/WEEK)
     Route: 061
  7. KETOCONAZOLE [Concomitant]
     Active Substance: KETOCONAZOLE
     Dosage: UNK (3X/WEEK IN SHOWER (SCALP))
  8. KETOCONAZOLE [Concomitant]
     Active Substance: KETOCONAZOLE
     Indication: Seborrhoeic dermatitis
     Dosage: UNK, 2X/DAY (APPLY TO AFFECTED AREA OF FACE AND EARS EVERY DAY - TWICE DAILY AS NEEDED)
     Route: 061
  9. KETOCONAZOLE [Concomitant]
     Active Substance: KETOCONAZOLE
     Dosage: UNK, ALTERNATE DAY
     Route: 061
  10. KETOCONAZOLE [Concomitant]
     Active Substance: KETOCONAZOLE
     Dosage: UNK, 2X/WEEK

REACTIONS (8)
  - Off label use [Unknown]
  - Product use issue [Unknown]
  - Application site pain [Unknown]
  - Rash erythematous [Recovering/Resolving]
  - Rash follicular [Unknown]
  - Rash [Unknown]
  - Scab [Unknown]
  - Dermatitis infected [Unknown]
